FAERS Safety Report 25076851 (Version 1)
Quarter: 2025Q1

REPORT INFORMATION
  Report Type: Report from Study
  Country: CO (occurrence: CO)
  Receive Date: 20250313
  Receipt Date: 20250313
  Transmission Date: 20250409
  Serious: Yes (Hospitalization)
  Sender: ABBVIE
  Company Number: CO-JNJFOC-20241280098

PATIENT
  Age: 68 Year
  Sex: Female
  Weight: 77 kg

DRUGS (1)
  1. IMBRUVICA [Suspect]
     Active Substance: IBRUTINIB
     Indication: Chronic lymphocytic leukaemia
     Route: 048
     Dates: start: 20240419

REACTIONS (4)
  - Cardiomegaly [Not Recovered/Not Resolved]
  - Tumour lysis syndrome [Not Recovered/Not Resolved]
  - Feeling abnormal [Not Recovered/Not Resolved]
  - Hepatomegaly [Not Recovered/Not Resolved]

NARRATIVE: CASE EVENT DATE: 20241224
